FAERS Safety Report 6384431-9 (Version None)
Quarter: 2009Q4

REPORT INFORMATION
  Report Type: 
  Country: None (occurrence: None)
  Receive Date: 20091001
  Receipt Date: 20090919
  Transmission Date: 20100525
  Serious: Yes (Other)
  Sender: FDA-Public Use
  Company Number: BE-PFIZER INC-2009272981

PATIENT
  Age: 47 Year

DRUGS (1)
  1. SUNITINIB MALATE [Suspect]
     Indication: RENAL CELL CARCINOMA
     Dosage: 50 MG, 1X/DAY 4/2 SCHEDULE

REACTIONS (9)
  - DERMATITIS EXFOLIATIVE [None]
  - EPISTAXIS [None]
  - FATIGUE [None]
  - HYPERTENSION [None]
  - NAUSEA [None]
  - PRURITUS [None]
  - SKIN FISSURES [None]
  - SKIN TOXICITY [None]
  - TRANSAMINASES INCREASED [None]
